FAERS Safety Report 8054314-7 (Version None)
Quarter: 2012Q1

REPORT INFORMATION
  Report Type: 
  Country: None (occurrence: None)
  Receive Date: 20120118
  Receipt Date: 20120111
  Transmission Date: 20120608
  Serious: Yes (Other)
  Sender: FDA-Public Use
  Company Number: PHHY2011BR51125

PATIENT
  Sex: Female
  Weight: 67 kg

DRUGS (3)
  1. FORMOTEROL FUMARATE [Suspect]
     Indication: ASTHMA
     Dosage: 1 DF, BID
     Dates: start: 20110530
  2. SYNTHROID [Concomitant]
     Indication: HYPOTHYROIDISM
     Dosage: 1 DF, QD (1 TABLET DAILY)
     Route: 048
  3. FORMOTEROL FUMARATE [Suspect]
     Dosage: 1 DF, BID
     Dates: start: 20110608

REACTIONS (6)
  - NASOPHARYNGITIS [None]
  - COUGH [None]
  - MATERNAL EXPOSURE DURING PREGNANCY [None]
  - CHOKING [None]
  - HAEMOPTYSIS [None]
  - NORMAL NEWBORN [None]
